FAERS Safety Report 7529450-1 (Version None)
Quarter: 2011Q2

REPORT INFORMATION
  Report Type: 
  Country: None (occurrence: None)
  Receive Date: 20110520
  Receipt Date: 20110302
  Transmission Date: 20111010
  Serious: No
  Sender: FDA-Public Use
  Company Number: 028527

PATIENT
  Sex: Female

DRUGS (3)
  1. LYRICA [Concomitant]
  2. DEPAKOTE [Concomitant]
  3. LACOSAMIDE [Suspect]
     Dates: start: 20110101

REACTIONS (1)
  - PSYCHOMOTOR HYPERACTIVITY [None]
